FAERS Safety Report 17545237 (Version 3)
Quarter: 2022Q4

REPORT INFORMATION
  Report Type: Report from Study
  Country: DE (occurrence: DE)
  Receive Date: 20200316
  Receipt Date: 20221017
  Transmission Date: 20230113
  Serious: Yes (Other)
  Sender: FDA-Public Use
  Company Number: DE-002147023-NVSC2020DE032536

PATIENT
  Sex: Female

DRUGS (3)
  1. METHOTREXATE [Suspect]
     Active Substance: METHOTREXATE
     Indication: Rheumatoid arthritis
     Dosage: UNK
     Route: 065
  2. ERELZI [Suspect]
     Active Substance: ETANERCEPT-SZZS
     Indication: Rheumatoid arthritis
     Dosage: UNK
     Route: 065
  3. XELJANZ [Suspect]
     Active Substance: TOFACITINIB CITRATE
     Indication: Product used for unknown indication
     Dosage: UNK
     Route: 065

REACTIONS (6)
  - Leukopenia [Not Recovered/Not Resolved]
  - Dermatitis psoriasiform [Recovered/Resolved]
  - Psoriasis [Not Recovered/Not Resolved]
  - Arthralgia [Not Recovered/Not Resolved]
  - Herpes simplex [Recovered/Resolved]
  - Fatigue [Not Recovered/Not Resolved]

NARRATIVE: CASE EVENT DATE: 20181123
